FAERS Safety Report 11468714 (Version 1)
Quarter: 2015Q3

REPORT INFORMATION
  Report Type: Spontaneous
  Country: DE (occurrence: DE)
  Receive Date: 20150908
  Receipt Date: 20150908
  Transmission Date: 20151125
  Serious: Yes (Hospitalization, Other)
  Sender: FDA-Public Use
  Company Number: DE-GLAXOSMITHKLINE INC.-DE2015GSK127880

PATIENT
  Age: 48 Year
  Sex: Male

DRUGS (6)
  1. QUETIAPINE [Suspect]
     Active Substance: QUETIAPINE
     Indication: SCHIZOAFFECTIVE DISORDER
     Dosage: 600 MG, BID
  2. BENPERIDOL [Suspect]
     Active Substance: BENPERIDOL
     Indication: SCHIZOAFFECTIVE DISORDER
     Dosage: 10 MG, QID
  3. CHLORPROTHIXENE [Suspect]
     Active Substance: CHLORPROTHIXENE
     Indication: SCHIZOAFFECTIVE DISORDER
     Dosage: 50 MG, TID
  4. LORAZEPAM. [Suspect]
     Active Substance: LORAZEPAM
  5. VALPROATE [Suspect]
     Active Substance: VALPROATE SODIUM
     Indication: PRODUCT USED FOR UNKNOWN INDICATION
     Dosage: UNK
  6. BIPERIDEN [Suspect]
     Active Substance: BIPERIDEN
     Indication: SCHIZOAFFECTIVE DISORDER
     Dosage: 4 MG, QD

REACTIONS (15)
  - Pyrexia [Unknown]
  - Depressed level of consciousness [Recovering/Resolving]
  - Procalcitonin increased [Recovering/Resolving]
  - Neuroleptic malignant syndrome [Recovering/Resolving]
  - Disturbance in attention [Recovering/Resolving]
  - C-reactive protein increased [Recovering/Resolving]
  - Thrombocytopenia [Recovering/Resolving]
  - Blood creatine phosphokinase increased [Recovering/Resolving]
  - Body temperature increased [Unknown]
  - Dyspnoea [Recovering/Resolving]
  - White blood cell count increased [Recovering/Resolving]
  - Platelet count decreased [Recovering/Resolving]
  - Chest X-ray abnormal [Recovering/Resolving]
  - Breath sounds abnormal [Recovering/Resolving]
  - Blood lactate dehydrogenase increased [Recovering/Resolving]
